FAERS Safety Report 24095797 (Version 2)
Quarter: 2024Q3

REPORT INFORMATION
  Report Type: Spontaneous
  Country: TW (occurrence: TW)
  Receive Date: 20240716
  Receipt Date: 20240724
  Transmission Date: 20241017
  Serious: Yes (Hospitalization)
  Sender: ACCORD
  Company Number: TW-MLMSERVICE-20240627-PI114238-00082-1

PATIENT
  Age: 35 Year
  Sex: Female
  Weight: 37 kg

DRUGS (4)
  1. CARBOPLATIN [Suspect]
     Active Substance: CARBOPLATIN
     Indication: Metastases to lymph nodes
     Dosage: CARBOPLATIN (DOSAGE: AREA UNDER THE CURVE- 5), CUMULATIVE DOSE: 1 CYCLICAL
  2. PACLITAXEL [Suspect]
     Active Substance: PACLITAXEL
     Indication: Fallopian tube cancer stage III
     Dosage: PACLITAXEL (DOSAGE: 135 MG/M2), CUMULATIVE DOSE: 1 CYCLICAL
  3. PACLITAXEL [Suspect]
     Active Substance: PACLITAXEL
     Indication: Metastases to lymph nodes
     Dosage: PACLITAXEL (DOSAGE: 135 MG/M2), CUMULATIVE DOSE: 1 CYCLICAL
  4. CARBOPLATIN [Suspect]
     Active Substance: CARBOPLATIN
     Indication: Fallopian tube cancer stage III
     Dosage: CARBOPLATIN (DOSAGE: AREA UNDER THE CURVE- 5), CUMULATIVE DOSE: 1 CYCLICAL

REACTIONS (1)
  - Pancytopenia [Recovered/Resolved]
